FAERS Safety Report 5051571-6 (Version None)
Quarter: 2006Q3

REPORT INFORMATION
  Report Type: 
  Country: None (occurrence: None)
  Receive Date: 20060711
  Receipt Date: 20060616
  Transmission Date: 20061208
  Serious: No
  Sender: FDA-Public Use
  Company Number: US200606004082

PATIENT
  Age: 73 Year
  Sex: Male

DRUGS (13)
  1. CYMBALTA [Suspect]
     Indication: POST-TRAUMATIC STRESS DISORDER
     Dosage: 30 MG, DAILY (1/D), ORAL; 20 MG, DAILY, (1/D)
     Route: 048
     Dates: start: 20050101
  2. DYNACIRC [Concomitant]
  3. ZOCOR [Concomitant]
  4. ASPIRIN [Concomitant]
  5. COENZYME Q10 [Concomitant]
  6. FLOMAX [Concomitant]
  7. UROXATRAL [Concomitant]
  8. CALCIUM W/MAGNESIUM/ZINC                (CALCIUM, MAGNESIUM, ZINC) [Concomitant]
  9. B-COMPLEX             (VITAMIN B NOS) [Concomitant]
  10. CENTRUM SILVER (ASCORBIC ACID, CALCIUM, MINERALS NOS, RETINOL, TOCOPHE [Concomitant]
  11. SELENIUM (SELENIUM) [Concomitant]
  12. FOLIC ACID [Concomitant]
  13. CYANOCOBALAMIN [Concomitant]

REACTIONS (3)
  - ATRIAL FIBRILLATION [None]
  - HEPATIC ENZYME INCREASED [None]
  - SOMNOLENCE [None]
